FAERS Safety Report 8952297 (Version 1)
Quarter: 2012Q4

REPORT INFORMATION
  Report Type: 
  Country: US (occurrence: US)
  Receive Date: 20121205
  Receipt Date: 20121205
  Transmission Date: 20130627
  Serious: Yes (Disabling, Other)
  Sender: FDA-Public Use
  Company Number: US-009507513-1211USA010947

PATIENT
  Sex: Female

DRUGS (1)
  1. VYTORIN [Suspect]
     Route: 048

REACTIONS (4)
  - Disability [Unknown]
  - Multiple sclerosis [Unknown]
  - Diabetes mellitus [Unknown]
  - Blood pressure increased [Unknown]
